FAERS Safety Report 7374582-4 (Version None)
Quarter: 2011Q1

REPORT INFORMATION
  Report Type: 
  Country: None (occurrence: None)
  Receive Date: 20110325
  Receipt Date: 20100405
  Transmission Date: 20110831
  Serious: No
  Sender: FDA-Public Use
  Company Number: US-MYLANLABS-2010S1005886

PATIENT
  Sex: Male

DRUGS (3)
  1. FENTANYL-100 [Suspect]
     Indication: PAIN
     Dosage: Q72HR
     Route: 062
  2. DIURETIC [Concomitant]
  3. IMMUNOSUPPRESSANTS [Concomitant]

REACTIONS (3)
  - PAIN [None]
  - WITHDRAWAL SYNDROME [None]
  - DRUG EFFECT DECREASED [None]
